FAERS Safety Report 23411259 (Version 1)
Quarter: 2024Q1

REPORT INFORMATION
  Report Type: Spontaneous
  Country: US (occurrence: US)
  Receive Date: 20240117
  Receipt Date: 20240117
  Transmission Date: 20240410
  Serious: No
  Sender: FDA-Public Use
  Company Number: US-SK LIFE SCIENCE, INC-SKPVG-2023-000427

PATIENT

DRUGS (9)
  1. XCOPRI [Suspect]
     Active Substance: CENOBAMATE
     Indication: Temporal lobe epilepsy
     Dosage: 12.5 MILLIGRAM, QD
     Route: 048
     Dates: start: 20230324, end: 20230406
  2. XCOPRI [Suspect]
     Active Substance: CENOBAMATE
     Indication: Focal dyscognitive seizures
     Dosage: 25 MILLIGRAM, QD
     Route: 048
     Dates: start: 20230407, end: 20230420
  3. XCOPRI [Suspect]
     Active Substance: CENOBAMATE
     Indication: Epilepsy
     Dosage: 50 MILLIGRAM, QD
     Route: 048
     Dates: start: 20230421, end: 20230504
  4. XCOPRI [Suspect]
     Active Substance: CENOBAMATE
     Dosage: 100 MILLIGRAM, QD
     Route: 048
     Dates: start: 20230505, end: 20230518
  5. XCOPRI [Suspect]
     Active Substance: CENOBAMATE
     Dosage: 150 MILLIGRAM, QD
     Route: 048
     Dates: start: 20230519
  6. DEPAKOTE [Concomitant]
     Active Substance: DIVALPROEX SODIUM
     Indication: Product used for unknown indication
     Dosage: UNK
     Route: 065
  7. DILANTIN                           /00017401/ [Concomitant]
     Indication: Product used for unknown indication
     Dosage: 300 MILLIGRAM
     Route: 065
  8. DILANTIN                           /00017401/ [Concomitant]
     Dosage: 200 MILLIGRAM
     Route: 065
     Dates: end: 20230420
  9. ALPRAZOLAM [Concomitant]
     Active Substance: ALPRAZOLAM
     Indication: Product used for unknown indication
     Dosage: UNK, PRN
     Route: 065

REACTIONS (1)
  - Stress [Recovered/Resolved]

NARRATIVE: CASE EVENT DATE: 20230420
